FAERS Safety Report 20853272 (Version 2)
Quarter: 2022Q2

REPORT INFORMATION
  Report Type: Report from Study
  Country: CA (occurrence: CA)
  Receive Date: 20220520
  Receipt Date: 20220608
  Transmission Date: 20220720
  Serious: Yes (Hospitalization, Other)
  Sender: FDA-Public Use
  Company Number: CA-ABBVIE-22K-028-4366222-00

PATIENT
  Sex: Female

DRUGS (2)
  1. HUMIRA [Suspect]
     Active Substance: ADALIMUMAB
     Indication: Rheumatoid arthritis
     Route: 058
     Dates: start: 201805, end: 202204
  2. HUMIRA [Suspect]
     Active Substance: ADALIMUMAB
     Route: 058
     Dates: start: 2022

REACTIONS (9)
  - Volvulus [Unknown]
  - Small intestinal obstruction [Unknown]
  - Tendon injury [Unknown]
  - Intestinal ischaemia [Unknown]
  - Diarrhoea haemorrhagic [Unknown]
  - Vomiting [Unknown]
  - Spinal stenosis [Unknown]
  - Volvulus [Unknown]
  - Ascites [Unknown]

NARRATIVE: CASE EVENT DATE: 20210101
